FAERS Safety Report 24581393 (Version 2)
Quarter: 2025Q2

REPORT INFORMATION
  Report Type: Report from Study
  Country: US (occurrence: US)
  Receive Date: 20241105
  Receipt Date: 20250507
  Transmission Date: 20250716
  Serious: Yes (Other)
  Sender: MERCK SHARP & DOHME LLC
  Company Number: None

PATIENT
  Sex: Female
  Weight: 77.098 kg

DRUGS (27)
  1. SOTATERCEPT [Suspect]
     Active Substance: SOTATERCEPT
     Indication: Pulmonary arterial hypertension
     Dosage: DOSE DESCRIPTION : 1.1 MILLILITER,  Q 21 DAYS (Q3W), STRENGTH: 60 MG KIT?DAILY DOSE : 0.052 MILLI...
     Route: 058
     Dates: start: 2024
  2. SOTATERCEPT [Suspect]
     Active Substance: SOTATERCEPT
  3. SOTATERCEPT [Suspect]
     Active Substance: SOTATERCEPT
  4. SOTATERCEPT [Suspect]
     Active Substance: SOTATERCEPT
  5. SOTATERCEPT [Suspect]
     Active Substance: SOTATERCEPT
     Indication: Pulmonary arterial hypertension
     Dosage: DOSE DESCRIPTION : 0.5 MILLILITER, Q 21 DAYS (Q3W), STRENGTH: 45 MG KIT?DAILY DOSE : 0.024 MILLIL...
     Route: 058
     Dates: start: 20240430
  6. SOTATERCEPT [Suspect]
     Active Substance: SOTATERCEPT
  7. SOTATERCEPT [Suspect]
     Active Substance: SOTATERCEPT
  8. SOTATERCEPT [Suspect]
     Active Substance: SOTATERCEPT
  9. REMODULIN [Suspect]
     Active Substance: TREPROSTINIL
     Indication: Pulmonary arterial hypertension
     Route: 058
     Dates: start: 20170119
  10. TRACLEER [Concomitant]
     Active Substance: BOSENTAN
  11. ADCIRCA [Concomitant]
     Active Substance: TADALAFIL
  12. OMEPRAZOLE [Concomitant]
     Active Substance: OMEPRAZOLE
  13. POTASSIUM CHLORIDE [Concomitant]
     Active Substance: POTASSIUM CHLORIDE
  14. ACETAMINOPHEN\HYDROCODONE [Concomitant]
     Active Substance: ACETAMINOPHEN\HYDROCODONE
  15. MELATONIN [Concomitant]
     Active Substance: MELATONIN
  16. SPIRONOLACTONE [Concomitant]
     Active Substance: SPIRONOLACTONE
  17. FOLIC ACID [Concomitant]
     Active Substance: FOLIC ACID
  18. ALBUTEROL SULFATE [Concomitant]
     Active Substance: ALBUTEROL SULFATE
  19. VITAMIN D3 [Concomitant]
     Active Substance: CHOLECALCIFEROL
  20. OXYGEN [Concomitant]
     Active Substance: OXYGEN
  21. DIGOXIN [Concomitant]
     Active Substance: DIGOXIN
  22. MAGNESIUM [Concomitant]
     Active Substance: MAGNESIUM
  23. ZOFRAN [Concomitant]
     Active Substance: ONDANSETRON HYDROCHLORIDE
  24. VITAMIN C [Concomitant]
     Active Substance: ASCORBIC ACID
  25. GAS X (Simeticone) [Concomitant]
  26. SODIUM CHLORIDE [Concomitant]
     Active Substance: SODIUM CHLORIDE
  27. DIETARY SUPPLEMENT [Concomitant]
     Active Substance: DIETARY SUPPLEMENT

REACTIONS (5)
  - Colon cancer [Unknown]
  - Injection site haemorrhage [Unknown]
  - Nausea [Unknown]
  - Injection site bruising [Unknown]
  - Epistaxis [Recovered/Resolved]

NARRATIVE: CASE EVENT DATE: 20240101
